FAERS Safety Report 24647062 (Version 1)
Quarter: 2024Q4

REPORT INFORMATION
  Report Type: Spontaneous
  Country: DE (occurrence: DE)
  Receive Date: 20241121
  Receipt Date: 20241121
  Transmission Date: 20250115
  Serious: Yes (Other)
  Sender: PFIZER
  Company Number: None

PATIENT
  Age: 84 Year
  Sex: Female

DRUGS (1)
  1. TAVOR (LORAZEPAM) [Suspect]
     Active Substance: LORAZEPAM
     Dosage: UNK; AT LEAST 615 TABLETS WERE ADMINISTERED
     Route: 048

REACTIONS (12)
  - Loss of consciousness [Recovered/Resolved with Sequelae]
  - Cerebrovascular accident [Not Recovered/Not Resolved]
  - Personality change [Not Recovered/Not Resolved]
  - Apathy [Recovered/Resolved with Sequelae]
  - Blood pressure increased [Recovered/Resolved with Sequelae]
  - Muscular weakness [Recovered/Resolved with Sequelae]
  - Fall [Unknown]
  - Speech disorder [Unknown]
  - Mental disorder [Unknown]
  - Mood swings [Unknown]
  - Aggression [Unknown]
  - Anxiety [Unknown]

NARRATIVE: CASE EVENT DATE: 20181101
